FAERS Safety Report 9845723 (Version 1)
Quarter: 2014Q1

REPORT INFORMATION
  Report Type: Spontaneous
  Country: US (occurrence: US)
  Receive Date: 20140127
  Receipt Date: 20140127
  Transmission Date: 20141002
  Serious: No
  Sender: FDA-Public Use
  Company Number: US-PFIZER INC-2014024093

PATIENT
  Age: 19 Year
  Sex: Female
  Weight: 47.17 kg

DRUGS (2)
  1. METHYLPREDNISOLONE [Suspect]
     Indication: ATYPICAL PNEUMONIA
     Dosage: 24 MG, UNK
     Dates: start: 20140121
  2. AZITHROMYCIN [Concomitant]
     Indication: ATYPICAL PNEUMONIA
     Dosage: 250 MG, DAILY

REACTIONS (2)
  - Chest discomfort [Unknown]
  - Chest pain [Recovering/Resolving]
